FAERS Safety Report 7202781-0 (Version None)
Quarter: 2010Q4

REPORT INFORMATION
  Report Type: 
  Country: None (occurrence: None)
  Receive Date: 20101229
  Receipt Date: 20101218
  Transmission Date: 20110411
  Serious: No
  Sender: FDA-Public Use
  Company Number: JP-ELI_LILLY_AND_COMPANY-JP201012001067

PATIENT
  Age: 75 Year
  Sex: Female

DRUGS (5)
  1. FORTEO [Suspect]
     Indication: OSTEOPOROSIS
     Dosage: 20 UG, DAILY (1/D)
     Route: 058
     Dates: start: 20101202
  2. BONALON [Concomitant]
     Indication: COLLAGEN DISORDER
     Route: 065
  3. ONEALFA [Concomitant]
     Indication: COLLAGEN DISORDER
  4. PREDNISOLONE [Concomitant]
     Indication: COLLAGEN DISORDER
  5. METHOTREXATE [Concomitant]

REACTIONS (1)
  - BACK PAIN [None]
